FAERS Safety Report 18496826 (Version 1)
Quarter: 2020Q4

REPORT INFORMATION
  Report Type: Spontaneous
  Country: US (occurrence: US)
  Receive Date: 20201112
  Receipt Date: 20201112
  Transmission Date: 20210114
  Serious: Yes (Hospitalization, Other)
  Sender: FDA-Public Use
  Company Number: US-TEVA-2020-US-1847776

PATIENT
  Sex: Male

DRUGS (15)
  1. ACETAMINOPHEN W/HYDROCODONE [Suspect]
     Active Substance: ACETAMINOPHEN\HYDROCODONE
     Route: 065
  2. TRAMADOL. [Suspect]
     Active Substance: TRAMADOL
     Dosage: FORM OF ADMIN: EXTENDED RELEASE TABLETS
     Route: 065
  3. MORPHINE [Suspect]
     Active Substance: MORPHINE
     Dosage: FORM OF ADMIN: EXTENDED RELEASE TABLETS
     Route: 065
  4. OPANA [Suspect]
     Active Substance: OXYMORPHONE HYDROCHLORIDE
     Route: 065
  5. OXYCONTIN [Suspect]
     Active Substance: OXYCODONE HYDROCHLORIDE
     Route: 065
  6. OXYCODONE EXTENDED RELEASE TABLETS [Suspect]
     Active Substance: OXYCODONE
     Dosage: FORM OF ADMIN: EXTENDED RELEASE TABLETS
     Route: 065
  7. ACETAMINOPHEN W/OXYCODONE [Suspect]
     Active Substance: ACETAMINOPHEN\OXYCODONE HYDROCHLORIDE
     Route: 065
  8. ROXICODONE [Suspect]
     Active Substance: OXYCODONE HYDROCHLORIDE
     Route: 065
  9. DILAUDID [Suspect]
     Active Substance: HYDROMORPHONE HYDROCHLORIDE
     Route: 065
  10. OXYCODONE IMMEDIATE RELEASE TABLETS [Suspect]
     Active Substance: OXYCODONE HYDROCHLORIDE
     Dosage: FORM OF ADMIN: IMMEDIATE RELEASE TABLETS
     Route: 065
  11. MSIR [Suspect]
     Active Substance: MORPHINE SULFATE
     Route: 065
  12. OXYMORPHONE [Suspect]
     Active Substance: OXYMORPHONE
     Route: 065
  13. OXYIR [Suspect]
     Active Substance: OXYCODONE HYDROCHLORIDE
     Route: 065
  14. MS CONTIN [Suspect]
     Active Substance: MORPHINE SULFATE
     Route: 065
  15. WELLBUTRIN [Suspect]
     Active Substance: BUPROPION HYDROCHLORIDE
     Route: 065

REACTIONS (11)
  - Fall [Unknown]
  - Dyspnoea [Unknown]
  - Dependence [Unknown]
  - Confusional state [Unknown]
  - Amnesia [Unknown]
  - Seizure [Unknown]
  - Feeding disorder [Unknown]
  - Insomnia [Unknown]
  - Nasal injury [Unknown]
  - Hospitalisation [Unknown]
  - Cerebrovascular accident [Unknown]
